FAERS Safety Report 6295419-0 (Version None)
Quarter: 2009Q3

REPORT INFORMATION
  Report Type: 
  Country: None (occurrence: None)
  Receive Date: 20090803
  Receipt Date: 20090723
  Transmission Date: 20100115
  Serious: Yes (Other)
  Sender: FDA-Public Use
  Company Number: PHHY2009GB25221

PATIENT
  Sex: Female

DRUGS (11)
  1. TEGRETOL [Suspect]
     Indication: EPILEPSY
     Dosage: 100 MG, TID
     Route: 048
  2. TEGRETOL [Suspect]
     Dosage: 1000 MG/DAY
     Route: 048
  3. TEGRETOL [Suspect]
     Dosage: 900 MG/DAY
     Route: 048
  4. PHENYTOIN [Concomitant]
     Indication: EPILEPSY
     Dosage: 200 MG, BID
     Route: 048
  5. LEVOTHYROXINE SODIUM [Concomitant]
     Indication: HYPERTHYROIDISM
     Dosage: 200 UG, QD
     Route: 048
  6. PANTOPRAZOLE SODIUM [Concomitant]
     Indication: GASTROOESOPHAGEAL REFLUX DISEASE
     Dosage: 1 DF, QD
     Route: 048
  7. ASPIRIN [Concomitant]
     Indication: MYOCARDIAL ISCHAEMIA
     Dosage: 75 MG, QD
     Route: 048
  8. PROTHIADEN [Concomitant]
     Indication: DEPRESSION
     Route: 048
  9. CELIPROLOL [Concomitant]
     Indication: MYOCARDIAL ISCHAEMIA
     Dosage: 200 MG IN MORNING
     Route: 048
  10. KEPPRA [Concomitant]
     Indication: EPILEPSY
     Dosage: 125 MG, BID
     Route: 048
  11. DIAZEPAM [Concomitant]
     Indication: ANXIETY
     Dosage: 5 MG IN MORNING, 2.5 MG AT NOON AND NIGHT
     Route: 048

REACTIONS (1)
  - ATRIAL FIBRILLATION [None]
